FAERS Safety Report 6220329-4 (Version None)
Quarter: 2009Q2

REPORT INFORMATION
  Report Type: 
  Country: None (occurrence: None)
  Receive Date: 20090610
  Receipt Date: 20090601
  Transmission Date: 20091009
  Serious: Yes (Other)
  Sender: FDA-Public Use
  Company Number: US-CELGENEUS-163-20785-09060273

PATIENT
  Sex: Male

DRUGS (4)
  1. THALOMID [Suspect]
     Indication: MULTIPLE MYELOMA
     Route: 048
     Dates: start: 20070701
  2. THALOMID [Suspect]
     Route: 048
     Dates: start: 20060801, end: 20070101
  3. THALOMID [Suspect]
     Route: 048
     Dates: start: 20051001, end: 20060401
  4. THALOMID [Suspect]
     Route: 048
     Dates: start: 20050401, end: 20050601

REACTIONS (1)
  - LOWER LIMB FRACTURE [None]
